FAERS Safety Report 16003416 (Version 1)
Quarter: 2019Q1

REPORT INFORMATION
  Report Type: Spontaneous
  Country: US (occurrence: US)
  Receive Date: 20190226
  Receipt Date: 20190226
  Transmission Date: 20190418
  Serious: Yes (Other)
  Sender: FDA-Public Use
  Company Number: US-AUROBINDO-AUR-APL-2019-008835

PATIENT

DRUGS (4)
  1. CINACALCET HYDROCHLORIDE. [Suspect]
     Active Substance: CINACALCET HYDROCHLORIDE
     Indication: HYPOPARATHYROIDISM
     Dosage: UNK
     Route: 065
  2. PHOSPHATE [Concomitant]
     Active Substance: UNSPECIFIED INGREDIENT
     Indication: HYPOPHOSPHATAEMIA
     Route: 048
  3. CALCITRIOL. [Concomitant]
     Active Substance: CALCITRIOL
     Indication: BLOOD CALCIUM
     Dosage: UNK
     Route: 065
  4. CINACALCET HYDROCHLORIDE. [Suspect]
     Active Substance: CINACALCET HYDROCHLORIDE
     Indication: HYPOPHOSPHATAEMIA

REACTIONS (1)
  - Hypercalciuria [Unknown]
